FAERS Safety Report 9708136 (Version 1)
Quarter: 2013Q4

REPORT INFORMATION
  Report Type: Spontaneous
  Country: GB (occurrence: GB)
  Receive Date: 20131125
  Receipt Date: 20131125
  Transmission Date: 20140711
  Serious: Yes (Other)
  Sender: FDA-Public Use
  Company Number: GB-TEVA-445411ISR

PATIENT
  Age: 66 Year
  Sex: Male
  Weight: 76 kg

DRUGS (3)
  1. BISOPROLOL [Suspect]
     Indication: CARDIAC DISORDER
     Route: 048
     Dates: start: 20121220, end: 20130209
  2. SEROXAT [Interacting]
     Indication: DEPRESSION
     Dosage: 20 MILLIGRAM DAILY; 20MG PER DAY
     Route: 065
     Dates: start: 2000
  3. SIMVASTATIN [Concomitant]
     Indication: CARDIAC DISORDER
     Route: 048
     Dates: start: 20121220, end: 20130209

REACTIONS (7)
  - Depression suicidal [Recovered/Resolved]
  - Suicide attempt [Recovered/Resolved]
  - Myocardial ischaemia [Unknown]
  - Angina pectoris [Unknown]
  - Anxiety [Recovered/Resolved]
  - Agitation [Recovered/Resolved]
  - Drug interaction [Unknown]
